FAERS Safety Report 10783724 (Version 2)
Quarter: 2015Q1

REPORT INFORMATION
  Report Type: Spontaneous
  Country: JP (occurrence: JP)
  Receive Date: 20150210
  Receipt Date: 20150305
  Transmission Date: 20150721
  Serious: Yes (Other)
  Sender: FDA-Public Use
  Company Number: JP-GLAXOSMITHKLINE INC.-JP2015JPN014719

PATIENT
  Sex: Male

DRUGS (3)
  1. SPIRIVA [Concomitant]
     Active Substance: TIOTROPIUM BROMIDE MONOHYDRATE
  2. ONBREZ [Concomitant]
     Active Substance: INDACATEROL
  3. SULTANOL [Suspect]
     Active Substance: ALBUTEROL SULFATE
     Dosage: 50 DF, 1D
     Route: 055

REACTIONS (2)
  - Drug dependence [Recovered/Resolved]
  - Overdose [Unknown]
